FAERS Safety Report 5267420-7 (Version None)
Quarter: 2007Q1

REPORT INFORMATION
  Report Type: 
  Country: None (occurrence: None)
  Receive Date: 20070316
  Receipt Date: 20070312
  Transmission Date: 20070707
  Serious: Yes (Hospitalization)
  Sender: FDA-Public Use
  Company Number: US-SHR-US-2006-039106

PATIENT
  Age: 34 Year
  Sex: Female
  Weight: 80.7 kg

DRUGS (1)
  1. MIRENA [Suspect]
     Dosage: 20 A?G/DAY, CONT
     Route: 015
     Dates: start: 20061102, end: 20061104

REACTIONS (4)
  - HYPOTENSION [None]
  - PROCEDURAL COMPLICATION [None]
  - SYNCOPE [None]
  - UTERINE HAEMORRHAGE [None]
